FAERS Safety Report 9165501 (Version 1)
Quarter: 2013Q1

REPORT INFORMATION
  Report Type: Spontaneous
  Country: US (occurrence: US)
  Receive Date: 20130315
  Receipt Date: 20130315
  Transmission Date: 20140127
  Serious: Yes (Hospitalization)
  Sender: FDA-Public Use
  Company Number: US-BAYER-2013-031304

PATIENT
  Age: 47 Year
  Sex: Female
  Weight: 69.84 kg

DRUGS (11)
  1. YASMIN [Suspect]
  2. OCELLA [Suspect]
  3. LEVOTHYROXINE [Concomitant]
     Dosage: 75 ?G, DAILY
  4. CIPROFLOXACIN [Concomitant]
     Dosage: 250 MG, UNK
  5. PHENAZOPYRIDINE [Concomitant]
     Dosage: 250 MG, UNK
  6. FLUCONAZOLE [Concomitant]
     Dosage: 100 MG, UNK
  7. AUGMENTIN [Concomitant]
     Dosage: 875/125MG
  8. IBUPROFEN [IBUPROFEN] [Concomitant]
  9. CEPACOL [Concomitant]
  10. SUDAFED [Concomitant]
  11. NORMAL SALINE [Concomitant]

REACTIONS (1)
  - Transient ischaemic attack [None]
